FAERS Safety Report 19470206 (Version 3)
Quarter: 2021Q3

REPORT INFORMATION
  Report Type: Spontaneous
  Country: JP (occurrence: JP)
  Receive Date: 20210629
  Receipt Date: 20210722
  Transmission Date: 20211014
  Serious: Yes (Hospitalization)
  Sender: FDA-Public Use
  Company Number: JP-ORGANON-O2106JPN000364J

PATIENT
  Age: 79 Year
  Sex: Female

DRUGS (13)
  1. EPADEL [EICOSAPENTAENOIC ACID ETHYL ESTER] [Concomitant]
     Indication: HYPERLIPIDAEMIA
     Dosage: UNK
     Route: 048
  2. OLMESARTAN [OLMESARTAN MEDOXOMIL] [Concomitant]
     Active Substance: OLMESARTAN MEDOXOMIL
     Indication: HYPERTENSION
     Dosage: UNK
     Route: 048
  3. RIONA [Concomitant]
     Active Substance: FERRIC CITRATE ANHYDROUS
     Indication: HYPERPHOSPHATAEMIA
     Dosage: UNK
     Route: 048
  4. RYBELSUS [Suspect]
     Active Substance: SEMAGLUTIDE
     Indication: TYPE 2 DIABETES MELLITUS
     Dosage: 14 MILLIGRAM, QD
     Route: 048
     Dates: start: 20210610, end: 20210621
  5. ATOZET COMBINATION TABLETS LD [Suspect]
     Active Substance: ATORVASTATIN CALCIUM\EZETIMIBE
     Indication: HYPERCHOLESTEROLAEMIA
     Dosage: UNK
     Route: 048
  6. CILNIDIPINE [Concomitant]
     Active Substance: CILNIDIPINE
     Indication: HYPERTENSION
     Dosage: UNK
     Route: 048
  7. AST 120 [Concomitant]
     Indication: CHRONIC KIDNEY DISEASE
     Dosage: 6 GRAM, TID
     Route: 048
  8. ORKEDIA [Concomitant]
     Active Substance: EVOCALCET
     Dosage: UNK
     Route: 048
  9. COVID?19 VACCINE [Concomitant]
     Dosage: UNK
     Route: 065
     Dates: start: 20210618
  10. RABEPRAZOLE NA [Concomitant]
     Active Substance: RABEPRAZOLE SODIUM
     Indication: GASTROOESOPHAGEAL REFLUX DISEASE
     Dosage: UNK
     Route: 048
  11. FEBURIC [Concomitant]
     Active Substance: FEBUXOSTAT
     Indication: HYPERURICAEMIA
     Dosage: UNK
     Route: 048
  12. FUROSEMIDE. [Concomitant]
     Active Substance: FUROSEMIDE
     Indication: HYPERTENSION
     Dosage: UNK
     Route: 048
  13. ONEALFA [Concomitant]
     Active Substance: ALFACALCIDOL
     Indication: CHRONIC KIDNEY DISEASE
     Dosage: UNK
     Route: 048

REACTIONS (2)
  - Glycosylated haemoglobin decreased [Unknown]
  - Vomiting [Recovered/Resolved]

NARRATIVE: CASE EVENT DATE: 20210610
